FAERS Safety Report 6062016-1 (Version None)
Quarter: 2009Q1

REPORT INFORMATION
  Report Type: 
  Country: None (occurrence: None)
  Receive Date: 20090202
  Receipt Date: 20090127
  Transmission Date: 20090719
  Serious: Yes (Other)
  Sender: FDA-Public Use
  Company Number: JP-B.I. PHARMACEUTICALS,INC./RIDGEFIELD-2009-BP-01079NB

PATIENT
  Age: 68 Year
  Sex: Male

DRUGS (3)
  1. SPIRIVA [Suspect]
     Indication: CHRONIC OBSTRUCTIVE PULMONARY DISEASE
     Dosage: 18MCG
     Route: 055
     Dates: start: 20080814, end: 20090126
  2. TULOBUTEROL [Suspect]
     Indication: CHRONIC OBSTRUCTIVE PULMONARY DISEASE
     Dosage: 2MG
     Route: 062
     Dates: start: 20080814, end: 20090126
  3. ONON [Concomitant]
     Dosage: 4ANZ
     Route: 048
     Dates: start: 20081021, end: 20090110

REACTIONS (1)
  - CARDIAC FAILURE ACUTE [None]
